FAERS Safety Report 15004660 (Version 1)
Quarter: 2018Q2

REPORT INFORMATION
  Report Type: Spontaneous
  Country: US (occurrence: US)
  Receive Date: 20180613
  Receipt Date: 20180613
  Transmission Date: 20180711
  Serious: Yes (Hospitalization)
  Sender: FDA-Public Use
  Company Number: US-AUROBINDO-AUR-APL-2017-46650

PATIENT
  Age: 44 Year
  Sex: Male

DRUGS (8)
  1. RISPERIDONE. [Interacting]
     Active Substance: RISPERIDONE
     Dosage: BIWEEKLY DEPOT ()
  2. RISPERIDONE. [Interacting]
     Active Substance: RISPERIDONE
     Route: 048
  3. CLOZAPINE. [Interacting]
     Active Substance: CLOZAPINE
  4. RISPERIDONE. [Suspect]
     Active Substance: RISPERIDONE
     Indication: SCHIZOAFFECTIVE DISORDER
     Dosage: ()
     Route: 048
  5. RISPERIDONE. [Interacting]
     Active Substance: RISPERIDONE
     Dosage: ()
  6. CLOZAPINE. [Interacting]
     Active Substance: CLOZAPINE
     Indication: SCHIZOAFFECTIVE DISORDER
     Dosage: ()
  7. RISPERIDONE. [Interacting]
     Active Substance: RISPERIDONE
     Dosage: DEPOT
  8. CLOZAPINE. [Interacting]
     Active Substance: CLOZAPINE
     Dosage: 125 MG IN THE MORNING AND 75 MG IN THE EVENING

REACTIONS (4)
  - Tremor [Unknown]
  - Dystonia [Unknown]
  - Extrapyramidal disorder [Recovered/Resolved]
  - Drug interaction [Unknown]
